FAERS Safety Report 7574150-5 (Version None)
Quarter: 2011Q2

REPORT INFORMATION
  Report Type: 
  Country: None (occurrence: None)
  Receive Date: 20110627
  Receipt Date: 20110616
  Transmission Date: 20111010
  Serious: Yes (Disabling)
  Sender: FDA-Public Use
  Company Number: JP-ASTRAZENECA-2011SE32574

PATIENT
  Age: 68 Year
  Sex: Female
  Weight: 39 kg

DRUGS (7)
  1. DECADRON [Concomitant]
     Route: 048
     Dates: start: 20110313, end: 20110521
  2. MAGNESIUM SULFATE [Concomitant]
     Route: 048
     Dates: start: 20110313, end: 20110521
  3. ZOLPIDEM [Concomitant]
     Route: 048
     Dates: start: 20110313, end: 20110521
  4. GAMOFA [Concomitant]
     Route: 048
     Dates: start: 20110313, end: 20110521
  5. AGENTS USED FOR COMMON COLD [Suspect]
     Indication: OROPHARYNGEAL PAIN
     Route: 048
     Dates: start: 20110517, end: 20110518
  6. IRESSA [Suspect]
     Indication: LUNG ADENOCARCINOMA
     Route: 048
     Dates: start: 20110412, end: 20110520
  7. DEPAKENE [Concomitant]
     Route: 048
     Dates: start: 20110313, end: 20110521

REACTIONS (2)
  - FEBRILE NEUTROPENIA [None]
  - LARYNGITIS [None]
